FAERS Safety Report 8464627-2 (Version None)
Quarter: 2012Q2

REPORT INFORMATION
  Report Type: 
  Country: None (occurrence: None)
  Receive Date: 20120323
  Receipt Date: 20111010
  Transmission Date: 20120825
  Serious: Yes (Other)
  Sender: FDA-Public Use
  Company Number: 163-21880-11101109

PATIENT
  Age: 53 Year
  Sex: Female

DRUGS (8)
  1. ZOFRAN [Concomitant]
  2. HUMALOG MIX 50/50 (INSULIN LISPRO) [Concomitant]
  3. XOPENEX [Concomitant]
  4. COLACE (DOCUSATE SODIUM) [Concomitant]
  5. LANTUS [Concomitant]
  6. METAMUCIL (PSYLLIUM) [Concomitant]
  7. LENALIDOMIDE [Suspect]
     Indication: MULTIPLE MYELOMA
     Dosage: 25 MG, X 14 CAPS, PO
     Route: 048
     Dates: start: 20110923
  8. LOVENOX [Concomitant]

REACTIONS (1)
  - THROMBOSIS [None]
